FAERS Safety Report 10154474 (Version 1)
Quarter: 2014Q2

REPORT INFORMATION
  Report Type: Spontaneous
  Country: AU (occurrence: AU)
  Receive Date: 20140506
  Receipt Date: 20140506
  Transmission Date: 20141212
  Serious: Yes (Hospitalization)
  Sender: FDA-Public Use
  Company Number: AU-ELI_LILLY_AND_COMPANY-AU201404010015

PATIENT
  Age: 33 Year
  Sex: Female
  Weight: 55 kg

DRUGS (5)
  1. OLANZAPINE [Suspect]
     Indication: PRODUCT USED FOR UNKNOWN INDICATION
     Dosage: 2.5 MG, SINGLE
     Route: 065
     Dates: start: 20131216, end: 20131216
  2. QUETIAPINE [Concomitant]
     Indication: POSTPARTUM DEPRESSION
     Dosage: UNK, UNKNOWN
     Route: 065
  3. QUETIAPINE [Concomitant]
     Indication: POST-TRAUMATIC STRESS DISORDER
  4. SERTRALINE [Concomitant]
     Indication: POSTPARTUM DEPRESSION
     Dosage: UNK, UNKNOWN
     Route: 065
  5. SERTRALINE [Concomitant]
     Indication: POST-TRAUMATIC STRESS DISORDER

REACTIONS (4)
  - Chest pain [Recovered/Resolved]
  - Dyspnoea [Recovered/Resolved]
  - Spasmodic dysphonia [Recovered/Resolved]
  - Electrocardiogram T wave inversion [Recovered/Resolved]
